FAERS Safety Report 18475636 (Version 1)
Quarter: 2020Q4

REPORT INFORMATION
  Report Type: Spontaneous
  Country: NL (occurrence: NL)
  Receive Date: 20201107
  Receipt Date: 20201107
  Transmission Date: 20210114
  Serious: Yes (Other)
  Sender: FDA-Public Use
  Company Number: NL-LUPIN PHARMACEUTICALS INC.-2020-08592

PATIENT
  Sex: Male

DRUGS (5)
  1. OXYTOCIN. [Suspect]
     Active Substance: OXYTOCIN
     Indication: LABOUR INDUCTION
     Dosage: UNK
     Route: 064
  2. DIAZOXIDE [Suspect]
     Active Substance: DIAZOXIDE
     Indication: CONGENITAL HYPERINSULINAEMIC HYPOGLYCAEMIA
     Dosage: 100 MILLIGRAM, QD
     Route: 064
  3. POTASSIUM [Suspect]
     Active Substance: POTASSIUM
     Indication: HYPOKALAEMIA
     Dosage: UNK
     Route: 064
  4. GLUCOSE [Suspect]
     Active Substance: DEXTROSE
     Indication: CONGENITAL HYPERINSULINAEMIC HYPOGLYCAEMIA
     Dosage: UNK
     Route: 064
  5. MISOPROSTOL. [Suspect]
     Active Substance: MISOPROSTOL
     Indication: INDUCTION OF CERVIX RIPENING
     Dosage: UNK
     Route: 064

REACTIONS (4)
  - Foetal exposure during pregnancy [Unknown]
  - Neonatal infection [Recovered/Resolved]
  - C-reactive protein increased [Recovered/Resolved]
  - Respiratory distress [Recovered/Resolved]
